FAERS Safety Report 6812927-1 (Version None)
Quarter: 2010Q3

REPORT INFORMATION
  Report Type: 
  Country: None (occurrence: None)
  Receive Date: 20100701
  Receipt Date: 20100625
  Transmission Date: 20110219
  Serious: Yes (Life-Threatening, Hospitalization, Other)
  Sender: FDA-Public Use
  Company Number: GB-BRISTOL-MYERS SQUIBB COMPANY-15143647

PATIENT
  Age: 53 Year
  Sex: Male
  Weight: 86 kg

DRUGS (6)
  1. ONGLYZA [Suspect]
     Indication: DIABETES MELLITUS
     Route: 048
     Dates: start: 20100523, end: 20100527
  2. TADALAFIL [Concomitant]
     Indication: ERECTILE DYSFUNCTION
     Route: 048
     Dates: start: 20060727
  3. ASPIRIN [Concomitant]
     Route: 048
     Dates: start: 20060428
  4. ATORVASTATIN [Concomitant]
     Indication: BLOOD CHOLESTEROL INCREASED
     Route: 048
     Dates: start: 20090429
  5. LISINOPRIL [Concomitant]
     Indication: HYPERTENSION
     Route: 048
     Dates: start: 20091125
  6. METFORMIN HCL [Concomitant]
     Indication: DIABETES MELLITUS
     Route: 048
     Dates: start: 20081030

REACTIONS (1)
  - ANAPHYLACTIC REACTION [None]
